FAERS Safety Report 25613603 (Version 1)
Quarter: 2025Q3

REPORT INFORMATION
  Report Type: Spontaneous
  Country: BR (occurrence: BR)
  Receive Date: 20250728
  Receipt Date: 20250728
  Transmission Date: 20251020
  Serious: Yes (Other)
  Sender: ANI
  Company Number: BR-ANIPHARMA-2025-BR-000026

PATIENT
  Sex: Female

DRUGS (1)
  1. ATACAND HCT [Suspect]
     Active Substance: CANDESARTAN CILEXETIL\HYDROCHLOROTHIAZIDE
     Indication: Hypertension

REACTIONS (4)
  - Haemorrhagic stroke [Unknown]
  - Blood pressure decreased [Unknown]
  - No adverse event [Unknown]
  - Hyperhidrosis [Unknown]
